FAERS Safety Report 23275988 (Version 1)
Quarter: 2023Q4

REPORT INFORMATION
  Report Type: Report from Study
  Country: KR (occurrence: KR)
  Receive Date: 20231208
  Receipt Date: 20231208
  Transmission Date: 20240110
  Serious: Yes (Other)
  Sender: FDA-Public Use
  Company Number: KR-VIIV HEALTHCARE LIMITED-KR2023APC172110

PATIENT

DRUGS (2)
  1. DOLUTEGRAVIR [Suspect]
     Active Substance: DOLUTEGRAVIR
     Indication: HIV infection
     Dosage: UNK
     Dates: start: 20181129, end: 20181213
  2. SULFAMETHOXAZOLE\TRIMETHOPRIM [Concomitant]
     Active Substance: SULFAMETHOXAZOLE\TRIMETHOPRIM
     Indication: Parasitic pneumonia
     Dosage: UNK
     Route: 042
     Dates: start: 20181127, end: 20181212

REACTIONS (4)
  - Delirium [Not Recovered/Not Resolved]
  - Immune reconstitution inflammatory syndrome [Not Recovered/Not Resolved]
  - Asthenia [Not Recovered/Not Resolved]
  - Candida infection [Not Recovered/Not Resolved]

NARRATIVE: CASE EVENT DATE: 20181130
